FAERS Safety Report 24664671 (Version 1)
Quarter: 2024Q4

REPORT INFORMATION
  Report Type: Spontaneous
  Country: NL (occurrence: NL)
  Receive Date: 20241126
  Receipt Date: 20241126
  Transmission Date: 20250115
  Serious: Yes (Other)
  Sender: BAYER HEALTHCARE PHARMACEUTICALS INC.
  Company Number: None

PATIENT
  Age: 49 Year
  Sex: Female
  Weight: 96.7 kg

DRUGS (1)
  1. MIRENA [Suspect]
     Active Substance: LEVONORGESTREL
     Indication: Menopausal symptoms
     Dosage: 20?G/DAY
     Route: 015
     Dates: start: 20240701, end: 20241024

REACTIONS (3)
  - Femoral nerve injury [Recovered/Resolved]
  - Back pain [Recovering/Resolving]
  - Abdominal pain lower [Not Recovered/Not Resolved]
